FAERS Safety Report 7788014-5 (Version None)
Quarter: 2011Q3

REPORT INFORMATION
  Report Type: 
  Country: None (occurrence: None)
  Receive Date: 20110927
  Receipt Date: 20110912
  Transmission Date: 20111222
  Serious: Yes (Other)
  Sender: FDA-Public Use
  Company Number: JPI-P-017046

PATIENT
  Age: 37 Year
  Sex: Female

DRUGS (2)
  1. XYREM [Suspect]
     Indication: NARCOLEPSY
     Dosage: (2.25 TO 3 GRAMS TWICE NIGHTLY),ORAL ; 4.5 GM (2.25 GM,2 IN 1 D),ORAL
     Route: 048
     Dates: start: 20110921
  2. XYREM [Suspect]
     Indication: NARCOLEPSY
     Dosage: (2.25 TO 3 GRAMS TWICE NIGHTLY),ORAL ; 4.5 GM (2.25 GM,2 IN 1 D),ORAL
     Route: 048
     Dates: start: 20100421, end: 20100101

REACTIONS (2)
  - TRANSIENT ISCHAEMIC ATTACK [None]
  - PATENT DUCTUS ARTERIOSUS [None]
